FAERS Safety Report 18182772 (Version 1)
Quarter: 2020Q3

REPORT INFORMATION
  Report Type: Other
  Country: JP (occurrence: JP)
  Receive Date: 20200821
  Receipt Date: 20200821
  Transmission Date: 20201103
  Serious: Yes (Life-Threatening)
  Sender: FDA-Public Use
  Company Number: JP-COVIS PHARMA B.V.-2013P1015469

PATIENT
  Age: 63 Year
  Sex: Male
  Weight: 59 kg

DRUGS (3)
  1. RILUZOLE. [Suspect]
     Active Substance: RILUZOLE
     Indication: AMYOTROPHIC LATERAL SCLEROSIS
     Dosage: 50 MG
     Route: 048
     Dates: start: 20061012, end: 20061109
  2. METHYCOBAL [Concomitant]
     Active Substance: METHYLCOBALAMIN
     Indication: SPINAL OSTEOARTHRITIS
  3. METHYCOBAL [Concomitant]
     Active Substance: METHYLCOBALAMIN
     Indication: AMYOTROPHIC LATERAL SCLEROSIS
     Dosage: .5 MG
     Route: 048
     Dates: start: 20060906

REACTIONS (2)
  - Pancreatitis acute [Recovered/Resolved]
  - Hepatic function abnormal [Recovered/Resolved]

NARRATIVE: CASE EVENT DATE: 20061105
